FAERS Safety Report 16066580 (Version 1)
Quarter: 2019Q1

REPORT INFORMATION
  Report Type: Spontaneous
  Country: CA (occurrence: CA)
  Receive Date: 20190313
  Receipt Date: 20190313
  Transmission Date: 20190418
  Serious: Yes (Other)
  Sender: FDA-Public Use
  Company Number: CA-PFIZER INC-2019094071

PATIENT
  Age: 51 Year
  Sex: Female

DRUGS (1)
  1. XELJANZ [Suspect]
     Active Substance: TOFACITINIB CITRATE
     Indication: PSORIATIC ARTHROPATHY
     Dosage: 5 MG BID (2X/DAY)
     Route: 048
     Dates: start: 20190221, end: 201902

REACTIONS (9)
  - Heart rate irregular [Unknown]
  - Right ventricular enlargement [Unknown]
  - Aortic aneurysm [Unknown]
  - Neoplasm [Unknown]
  - Osteoarthritis [Unknown]
  - Cerebrovascular accident [Unknown]
  - Vomiting [Recovered/Resolved]
  - Blood cholesterol abnormal [Unknown]
  - Intracranial aneurysm [Unknown]

NARRATIVE: CASE EVENT DATE: 20190225
